FAERS Safety Report 7112643-5 (Version None)
Quarter: 2010Q4

REPORT INFORMATION
  Report Type: 
  Country: None (occurrence: None)
  Receive Date: 20101119
  Receipt Date: 20101109
  Transmission Date: 20110411
  Serious: Yes (Hospitalization, Other)
  Sender: FDA-Public Use
  Company Number: JP-JNJFOC-20090201207

PATIENT
  Sex: Male
  Weight: 62 kg

DRUGS (14)
  1. LEUSTATIN [Suspect]
     Indication: HAIRY CELL LEUKAEMIA
     Route: 041
  2. ITRIZOLE [Suspect]
     Indication: PROPHYLAXIS
     Route: 048
  3. CIPROFLOXACIN [Suspect]
     Indication: FEBRILE NEUTROPENIA
     Route: 041
  4. CIPROFLOXACIN [Suspect]
     Indication: PYREXIA
     Route: 041
  5. BAKTAR [Suspect]
     Indication: PROPHYLAXIS
     Route: 048
  6. NEU-UP [Suspect]
     Indication: ILL-DEFINED DISORDER
     Route: 041
  7. MAGNESIUM OXIDE [Suspect]
     Indication: CONSTIPATION
     Route: 048
  8. VALTREX [Concomitant]
     Indication: HERPES ZOSTER
     Route: 048
  9. VALTREX [Concomitant]
     Route: 048
  10. ACYCLOVIR [Concomitant]
     Indication: HERPES ZOSTER
     Route: 041
  11. TERRA-CORTRIL [Concomitant]
     Indication: HERPES ZOSTER
     Route: 061
  12. ARASENA-A [Concomitant]
     Indication: HERPES ZOSTER
     Route: 061
  13. ZYLORIC [Concomitant]
     Indication: TUMOUR LYSIS SYNDROME
     Route: 048
  14. ZYLORIC [Concomitant]
     Route: 048

REACTIONS (14)
  - BLOOD URIC ACID INCREASED [None]
  - C-REACTIVE PROTEIN INCREASED [None]
  - CONSTIPATION [None]
  - DERMATITIS BULLOUS [None]
  - FEBRILE NEUTROPENIA [None]
  - HAEMATOCRIT DECREASED [None]
  - HAEMOGLOBIN DECREASED [None]
  - HEPATIC FUNCTION ABNORMAL [None]
  - HERPES ZOSTER [None]
  - MONOCYTE COUNT INCREASED [None]
  - PLATELET COUNT DECREASED [None]
  - RED BLOOD CELL COUNT DECREASED [None]
  - TOXIC SKIN ERUPTION [None]
  - WHITE BLOOD CELL COUNT DECREASED [None]
